FAERS Safety Report 7689127-9 (Version None)
Quarter: 2011Q3

REPORT INFORMATION
  Report Type: 
  Country: None (occurrence: None)
  Receive Date: 20110811
  Receipt Date: 20110801
  Transmission Date: 20111222
  Serious: Yes (Hospitalization, Other)
  Sender: FDA-Public Use
  Company Number: 2011P1007779

PATIENT
  Age: 2 Month
  Sex: Female

DRUGS (5)
  1. LEUCOVORIN SUSPENSION [Concomitant]
  2. DARAPRIM [Suspect]
     Indication: CONGENITAL TOXOPLASMOSIS
     Dosage: 1.8 MLG;BID;PO ; 1.8 ML;QD;PO ; 2.5 ML;QD;PO
     Route: 048
     Dates: start: 20110528, end: 20110601
  3. DARAPRIM [Suspect]
     Indication: CONGENITAL TOXOPLASMOSIS
     Dosage: 1.8 MLG;BID;PO ; 1.8 ML;QD;PO ; 2.5 ML;QD;PO
     Route: 048
     Dates: start: 20110601, end: 20110627
  4. DARAPRIM [Suspect]
     Indication: CONGENITAL TOXOPLASMOSIS
     Dosage: 1.8 MLG;BID;PO ; 1.8 ML;QD;PO ; 2.5 ML;QD;PO
     Route: 048
     Dates: start: 20110707, end: 20110729
  5. SUFLADIAZINE SUSPENSION [Concomitant]

REACTIONS (2)
  - NEUTROPENIA [None]
  - WRONG TECHNIQUE IN DRUG USAGE PROCESS [None]
